FAERS Safety Report 14983597 (Version 1)
Quarter: 2018Q2

REPORT INFORMATION
  Report Type: Spontaneous
  Country: US (occurrence: US)
  Receive Date: 20180517
  Receipt Date: 20180517
  Transmission Date: 20180711
  Serious: Yes (Hospitalization)
  Sender: FDA-Public Use
  Company Number: None

PATIENT
  Age: 71 Year
  Sex: Male

DRUGS (3)
  1. REPATHA [Suspect]
     Active Substance: EVOLOCUMAB
     Indication: LIPID METABOLISM DISORDER
     Dosage: ?          OTHER FREQUENCY:EVERY TWO WEEKS;?
     Route: 058
     Dates: start: 20180420
  2. ZETIA 10 MG [Concomitant]
     Dates: start: 20180417
  3. NIACIN 250 MG [Concomitant]
     Dates: start: 20180417

REACTIONS (3)
  - Hypoaesthesia [None]
  - Muscle spasms [None]
  - Peripheral swelling [None]

NARRATIVE: CASE EVENT DATE: 20180430
